FAERS Safety Report 5277181-3 (Version None)
Quarter: 2007Q1

REPORT INFORMATION
  Report Type: 
  Country: None (occurrence: None)
  Receive Date: 20070327
  Receipt Date: 20070319
  Transmission Date: 20070707
  Serious: Yes (Hospitalization)
  Sender: FDA-Public Use
  Company Number: 2007CG00456

PATIENT
  Age: 85 Year
  Sex: Female

DRUGS (16)
  1. NEXIUM [Suspect]
     Route: 042
     Dates: start: 20061028, end: 20061030
  2. NEXIUM [Interacting]
     Route: 048
     Dates: start: 20061031, end: 20061102
  3. COLCHIMAX [Interacting]
     Indication: GOUT
     Route: 048
     Dates: start: 20061025, end: 20061026
  4. COLCHIMAX [Interacting]
     Route: 048
     Dates: start: 20061027, end: 20061028
  5. JOSACINE [Interacting]
     Route: 048
     Dates: start: 20061025, end: 20061028
  6. OMEPRAZOLE [Concomitant]
     Route: 048
     Dates: end: 20061028
  7. PREVISCAN [Concomitant]
     Route: 048
     Dates: end: 20061028
  8. PREVISCAN [Concomitant]
     Route: 048
     Dates: start: 20061031
  9. KASKADIL [Concomitant]
     Route: 042
     Dates: start: 20061028, end: 20061028
  10. LASIX [Concomitant]
     Dates: end: 20061001
  11. LASIX [Concomitant]
     Dates: start: 20061031
  12. DIGOXIN [Concomitant]
     Dosage: 1 DF QOD
     Dates: end: 20061001
  13. DIGOXIN [Concomitant]
     Dosage: 1 DF QOD
     Dates: start: 20061031
  14. DITROPAN [Concomitant]
     Dates: end: 20061028
  15. ALBUMIN (HUMAN) [Concomitant]
     Dates: start: 20061030, end: 20061030
  16. VITAMIN K [Concomitant]
     Dates: start: 20061028, end: 20061028

REACTIONS (2)
  - DRUG INTERACTION [None]
  - PANCYTOPENIA [None]
